FAERS Safety Report 17954923 (Version 1)
Quarter: 2020Q2

REPORT INFORMATION
  Report Type: Spontaneous
  Country: US (occurrence: US)
  Receive Date: 20200626
  Receipt Date: 20200626
  Transmission Date: 20200714
  Serious: Yes (Hospitalization)
  Sender: FDA-Public Use
  Company Number: None

PATIENT
  Age: 58 Year
  Sex: Male

DRUGS (9)
  1. SILDENAFIL 20MG [Suspect]
     Active Substance: SILDENAFIL
     Indication: PULMONARY ARTERIAL HYPERTENSION
     Route: 048
     Dates: start: 20190411
  2. GABAPENTIN. [Concomitant]
     Active Substance: GABAPENTIN
  3. ROPINROLE [Concomitant]
     Active Substance: ROPINIROLE
  4. FUROSEMIDE. [Concomitant]
     Active Substance: FUROSEMIDE
  5. PANTOPRAZOLE [Concomitant]
     Active Substance: PANTOPRAZOLE
  6. TRAMADOL. [Concomitant]
     Active Substance: TRAMADOL
  7. HYDROXZ [Concomitant]
  8. MIRTAZAPINE. [Concomitant]
     Active Substance: MIRTAZAPINE
  9. POT CL MICRO [Concomitant]

REACTIONS (1)
  - Pulmonary arterial hypertension [None]

NARRATIVE: CASE EVENT DATE: 202006
